FAERS Safety Report 6294309-7 (Version None)
Quarter: 2009Q3

REPORT INFORMATION
  Report Type: 
  Country: None (occurrence: None)
  Receive Date: 20090803
  Receipt Date: 20090602
  Transmission Date: 20100115
  Serious: No
  Sender: FDA-Public Use
  Company Number: A0788194A

PATIENT
  Age: 40 Year
  Sex: Male

DRUGS (1)
  1. NICORETTE [Suspect]
     Dates: start: 20090601, end: 20090601

REACTIONS (5)
  - HYPERSENSITIVITY [None]
  - ORAL DISCOMFORT [None]
  - PARAESTHESIA ORAL [None]
  - SWELLING FACE [None]
  - SWOLLEN TONGUE [None]
